FAERS Safety Report 12632659 (Version 2)
Quarter: 2016Q3

REPORT INFORMATION
  Report Type: Spontaneous
  Country: US (occurrence: US)
  Receive Date: 20160808
  Receipt Date: 20160808
  Transmission Date: 20161109
  Serious: No
  Sender: FDA-Public Use
  Company Number: US-BEH-2015056439

PATIENT
  Sex: Female
  Weight: 58 kg

DRUGS (25)
  1. METFORMIN [Concomitant]
     Active Substance: METFORMIN HYDROCHLORIDE
  2. LISINOPRIL. [Concomitant]
     Active Substance: LISINOPRIL
  3. DUONEB [Concomitant]
     Active Substance: ALBUTEROL SULFATE\IPRATROPIUM BROMIDE
  4. OXYGEN. [Concomitant]
     Active Substance: OXYGEN
  5. LIDOCAINE/PRILOCAINE [Concomitant]
     Active Substance: LIDOCAINE\PRILOCAINE
  6. LASIX [Concomitant]
     Active Substance: FUROSEMIDE
  7. THEO-DUR [Concomitant]
     Active Substance: THEOPHYLLINE ANHYDROUS
  8. NASONEX [Concomitant]
     Active Substance: MOMETASONE FUROATE
  9. LIDODERM [Concomitant]
     Active Substance: LIDOCAINE
  10. MS CONTIN [Concomitant]
     Active Substance: MORPHINE SULFATE
  11. HIZENTRA [Suspect]
     Active Substance: HUMAN IMMUNOGLOBULIN G
     Indication: HYPOGAMMAGLOBULINAEMIA
     Route: 058
  12. BACTRIM [Concomitant]
     Active Substance: SULFAMETHOXAZOLE\TRIMETHOPRIM
  13. OXYCODONE [Concomitant]
     Active Substance: OXYCODONE
  14. COMPAZINE [Concomitant]
     Active Substance: PROCHLORPERAZINE MALEATE
  15. HIZENTRA [Suspect]
     Active Substance: HUMAN IMMUNOGLOBULIN G
     Route: 058
  16. PRISTIQ EXTENDED-RELEASE [Concomitant]
     Active Substance: DESVENLAFAXINE SUCCINATE
  17. VITAMIN D [Concomitant]
     Active Substance: CHOLECALCIFEROL
  18. POTASSIUM CHLORIDE. [Concomitant]
     Active Substance: POTASSIUM CHLORIDE
  19. HIZENTRA [Suspect]
     Active Substance: HUMAN IMMUNOGLOBULIN G
     Route: 058
  20. EPIPEN [Concomitant]
     Active Substance: EPINEPHRINE
  21. ALBUTEROL. [Concomitant]
     Active Substance: ALBUTEROL
  22. PREDNISONE. [Concomitant]
     Active Substance: PREDNISONE
  23. TRICOR [Concomitant]
     Active Substance: FENOFIBRATE
  24. TIAZAC [Concomitant]
     Active Substance: DILTIAZEM HYDROCHLORIDE
  25. NYSTATIN. [Concomitant]
     Active Substance: NYSTATIN

REACTIONS (1)
  - Upper respiratory tract infection [Unknown]
